FAERS Safety Report 7710057-8 (Version None)
Quarter: 2011Q3

REPORT INFORMATION
  Report Type: 
  Country: None (occurrence: None)
  Receive Date: 20110825
  Receipt Date: 20110816
  Transmission Date: 20111222
  Serious: Yes (Other)
  Sender: FDA-Public Use
  Company Number: PHHY2010CA27000

PATIENT
  Sex: Female

DRUGS (1)
  1. SANDOSTATIN LAR [Suspect]
     Indication: NEUROENDOCRINE TUMOUR
     Dosage: 20 MG EVERY 4 WEEKS
     Route: 030
     Dates: start: 20100329

REACTIONS (5)
  - NAUSEA [None]
  - BLOOD PRESSURE DIASTOLIC DECREASED [None]
  - MUSCULOSKELETAL PAIN [None]
  - CONSTIPATION [None]
  - BLOOD PRESSURE SYSTOLIC INCREASED [None]
